FAERS Safety Report 21706615 (Version 1)
Quarter: 2022Q4

REPORT INFORMATION
  Report Type: Spontaneous
  Country: US (occurrence: US)
  Receive Date: 20221209
  Receipt Date: 20221209
  Transmission Date: 20230113
  Serious: Yes (Other)
  Sender: FDA-Public Use
  Company Number: US-BAXTER-2022BAX026100

PATIENT
  Age: 20 Year
  Sex: Male

DRUGS (7)
  1. IFOSFAMIDE [Suspect]
     Active Substance: IFOSFAMIDE
     Indication: Haemophagocytic lymphohistiocytosis
     Dosage: DOSE-REDUCED ICE, CYCLICAL
     Route: 065
  2. CARBOPLATIN [Suspect]
     Active Substance: CARBOPLATIN
     Indication: Haemophagocytic lymphohistiocytosis
     Dosage: DOSE-REDUCED ICE, CYCLICAL
     Route: 065
  3. ETOPOSIDE [Suspect]
     Active Substance: ETOPOSIDE
     Indication: Haemophagocytic lymphohistiocytosis
     Dosage: DOSE-REDUCED ICE, CYCLICAL
     Route: 065
  4. DEXAMETHASONE [Concomitant]
     Active Substance: DEXAMETHASONE
     Indication: Haemophagocytic lymphohistiocytosis
     Dosage: DOSE-REDUCED
     Route: 065
  5. ETOPOSIDE [Concomitant]
     Active Substance: ETOPOSIDE
     Indication: Haemophagocytic lymphohistiocytosis
     Dosage: DOSE-REDUCED
     Route: 065
  6. Immunoglobulin [Concomitant]
     Indication: Haemophagocytic lymphohistiocytosis
     Dosage: IVIG
     Route: 042
  7. RITUXIMAB [Concomitant]
     Active Substance: RITUXIMAB
     Indication: Epstein-Barr viraemia
     Dosage: (375 MG/M2) WEEKLY
     Route: 065

REACTIONS (6)
  - Retroperitoneal haematoma [Unknown]
  - Spontaneous haematoma [Unknown]
  - Abdominal pain [Unknown]
  - Pancytopenia [Unknown]
  - Hypertransaminasaemia [Unknown]
  - Condition aggravated [Unknown]
